FAERS Safety Report 8159356-9 (Version None)
Quarter: 2012Q1

REPORT INFORMATION
  Report Type: 
  Country: None (occurrence: None)
  Receive Date: 20120223
  Receipt Date: 20120203
  Transmission Date: 20120608
  Serious: No
  Sender: FDA-Public Use
  Company Number: US-ROXANE LABORATORIES, INC.-2012-RO-00607RO

PATIENT
  Age: 66 Year
  Sex: Male

DRUGS (1)
  1. FLUTICASONE PROPIONATE [Suspect]
     Indication: SNORING
     Dosage: 50 MCG
     Route: 045
     Dates: start: 20120123, end: 20120125

REACTIONS (3)
  - DYSURIA [None]
  - DISORIENTATION [None]
  - INFLUENZA LIKE ILLNESS [None]
